FAERS Safety Report 13098493 (Version 4)
Quarter: 2017Q1

REPORT INFORMATION
  Report Type: Spontaneous
  Country: AU (occurrence: AU)
  Receive Date: 20170109
  Receipt Date: 20170222
  Transmission Date: 20170428
  Serious: Yes (Other)
  Sender: FDA-Public Use
  Company Number: AU-PFIZER INC-2017004184

PATIENT
  Age: 88 Year
  Sex: Female

DRUGS (4)
  1. TEMTABS [Concomitant]
     Active Substance: TEMAZEPAM
     Indication: INSOMNIA
     Dosage: UNK
  2. OZPAN [Concomitant]
     Indication: GASTROOESOPHAGEAL REFLUX DISEASE
     Dosage: UNK
     Dates: start: 2016
  3. EFFEXOR XR [Suspect]
     Active Substance: VENLAFAXINE HYDROCHLORIDE
     Indication: DEPRESSION
     Dosage: 150 MG, 1X/DAY
     Dates: start: 2016
  4. TAMOXIFEN [Concomitant]
     Active Substance: TAMOXIFEN
     Indication: INSOMNIA
     Dosage: UNK

REACTIONS (5)
  - Obsessive thoughts [Recovering/Resolving]
  - Hallucination [Recovered/Resolved]
  - Paranoia [Recovered/Resolved]
  - Suicidal ideation [Unknown]
  - Nervousness [Unknown]

NARRATIVE: CASE EVENT DATE: 20161225
